FAERS Safety Report 7364677-3 (Version None)
Quarter: 2011Q1

REPORT INFORMATION
  Report Type: 
  Country: None (occurrence: None)
  Receive Date: 20110321
  Receipt Date: 20110316
  Transmission Date: 20110831
  Serious: Yes (Other)
  Sender: FDA-Public Use
  Company Number: CH-CEPHALON-2011001288

PATIENT
  Age: 69 Year
  Sex: Female
  Weight: 88 kg

DRUGS (8)
  1. RITUXIMAB [Suspect]
     Route: 042
     Dates: start: 20110308
  2. QUIRIL [Concomitant]
  3. SOLU-MEDROL [Concomitant]
     Dates: start: 20110309, end: 20110310
  4. FORTECORTIN [Concomitant]
     Dates: start: 20110311, end: 20110312
  5. METFIN [Concomitant]
  6. SIMCORA [Concomitant]
  7. BENDAMUSTINE HCL [Suspect]
     Route: 042
     Dates: start: 20110309
  8. ASPIRIN [Concomitant]

REACTIONS (1)
  - URETERIC OBSTRUCTION [None]
